FAERS Safety Report 5194343-4 (Version None)
Quarter: 2006Q4

REPORT INFORMATION
  Report Type: 
  Country: None (occurrence: None)
  Receive Date: 20061228
  Receipt Date: 20061214
  Transmission Date: 20070319
  Serious: Yes (Hospitalization)
  Sender: FDA-Public Use
  Company Number: US-SHR-US-2006-039420

PATIENT
  Age: 52 Year
  Sex: Female

DRUGS (2)
  1. BETASERON [Suspect]
     Dosage: UNK, EVERY 2D
     Route: 058
     Dates: start: 20060605, end: 20061127
  2. AVONEX [Suspect]
     Dosage: UNK, 1X/WEEK
     Route: 030
     Dates: start: 20060101

REACTIONS (5)
  - CARDIAC STRESS TEST ABNORMAL [None]
  - DECREASED APPETITE [None]
  - ELECTROCARDIOGRAM ABNORMAL [None]
  - HYPERTENSION [None]
  - SCOLIOSIS [None]
